FAERS Safety Report 22758941 (Version 2)
Quarter: 2025Q2

REPORT INFORMATION
  Report Type: Report from Study
  Country: CA (occurrence: CA)
  Receive Date: 20230728
  Receipt Date: 20250507
  Transmission Date: 20250717
  Serious: Yes (Other)
  Sender: JOHNSON AND JOHNSON
  Company Number: CA-JNJFOC-20230741898

PATIENT
  Age: 61 Year
  Sex: Male
  Weight: 74 kg

DRUGS (3)
  1. REMICADE [Suspect]
     Active Substance: INFLIXIMAB
     Indication: Colitis
     Route: 041
     Dates: start: 20250214, end: 20250327
  2. REMICADE [Suspect]
     Active Substance: INFLIXIMAB
     Dosage: DOSE IS 5 MG/KG AT WEEK 0,2,6 THEN EVERY 8 WEEKS
     Route: 041
  3. PEMBROLIZUMAB [Suspect]
     Active Substance: PEMBROLIZUMAB
     Indication: Lung neoplasm malignant
     Route: 065

REACTIONS (3)
  - Lung neoplasm malignant [Unknown]
  - Colitis [Unknown]
  - Off label use [Unknown]
